FAERS Safety Report 12635033 (Version 1)
Quarter: 2016Q3

REPORT INFORMATION
  Report Type: Spontaneous
  Country: US (occurrence: US)
  Receive Date: 20160809
  Receipt Date: 20160809
  Transmission Date: 20161109
  Serious: No
  Sender: FDA-Public Use
  Company Number: US-B.I. PHARMACEUTICALS,INC./RIDGEFIELD-2016-BI-47677BP

PATIENT
  Age: 59 Year
  Sex: Male

DRUGS (17)
  1. PANTOPRAZOLE [Concomitant]
     Active Substance: PANTOPRAZOLE SODIUM
     Indication: DYSPEPSIA
     Dosage: 40 MG
     Route: 048
     Dates: start: 2014
  2. LANTUS [Concomitant]
     Active Substance: INSULIN GLARGINE
     Indication: TYPE 2 DIABETES MELLITUS
     Dosage: 18 U
     Route: 058
  3. ASPIRIN. [Concomitant]
     Active Substance: ASPIRIN
     Indication: ANTICOAGULANT THERAPY
     Dosage: 81 MG
     Route: 048
     Dates: start: 1995
  4. METFORMIN [Concomitant]
     Active Substance: METFORMIN HYDROCHLORIDE
     Indication: TYPE 2 DIABETES MELLITUS
     Dosage: 2000 MG
     Route: 048
     Dates: start: 201601
  5. CLOPIDOGREL BISULFATE. [Concomitant]
     Active Substance: CLOPIDOGREL BISULFATE
     Indication: ANTICOAGULANT THERAPY
     Dosage: 75 MG
     Route: 048
     Dates: start: 2014
  6. PRAVASTATIN. [Concomitant]
     Active Substance: PRAVASTATIN
     Indication: BLOOD CHOLESTEROL INCREASED
     Dosage: 40 MG
     Route: 048
     Dates: start: 2011
  7. OXYCODONE [Concomitant]
     Active Substance: OXYCODONE
     Indication: NECK PAIN
     Dosage: 20 MG
     Route: 048
  8. DIAZEPAM. [Concomitant]
     Active Substance: DIAZEPAM
     Indication: DEPRESSION
  9. SPIRIVA [Suspect]
     Active Substance: TIOTROPIUM BROMIDE MONOHYDRATE
     Indication: CHRONIC OBSTRUCTIVE PULMONARY DISEASE
     Dosage: 18 MCG
     Route: 055
     Dates: start: 2013, end: 2015
  10. SPIRIVA [Suspect]
     Active Substance: TIOTROPIUM BROMIDE MONOHYDRATE
     Dosage: 18 MCG
     Route: 055
     Dates: start: 201512
  11. SPIRIVA [Suspect]
     Active Substance: TIOTROPIUM BROMIDE MONOHYDRATE
     Dosage: 18 MCG
     Route: 048
     Dates: start: 20160720, end: 20160720
  12. DOXAZOSIN MESYLATE. [Concomitant]
     Active Substance: DOXAZOSIN MESYLATE
     Indication: BLOOD CHOLESTEROL INCREASED
     Dosage: 4 MG
     Route: 048
  13. METAPROLOL TARTRATE [Concomitant]
     Active Substance: METOPROLOL TARTRATE
     Indication: PRODUCT USED FOR UNKNOWN INDICATION
     Dosage: 50 MG
     Route: 048
     Dates: start: 2015
  14. FUROSEMIDE. [Concomitant]
     Active Substance: FUROSEMIDE
     Indication: PRODUCT USED FOR UNKNOWN INDICATION
     Dosage: STRENGTH: 40 MG
     Route: 048
     Dates: start: 20160401
  15. DIAZEPAM. [Concomitant]
     Active Substance: DIAZEPAM
     Indication: ANXIETY
     Dosage: 15 MG
     Route: 048
  16. SYMBICORT [Concomitant]
     Active Substance: BUDESONIDE\FORMOTEROL FUMARATE DIHYDRATE
     Indication: CHRONIC OBSTRUCTIVE PULMONARY DISEASE
     Dosage: DOSE PER APPLICATION: 160MCG/4.5MCG; DAILY DOSE: 320 MCG/4.5MCG
     Route: 055
  17. PROVENTIL [Concomitant]
     Active Substance: ALBUTEROL
     Indication: CHRONIC OBSTRUCTIVE PULMONARY DISEASE
     Route: 055

REACTIONS (2)
  - Incorrect route of drug administration [Recovered/Resolved]
  - Pruritus [Not Recovered/Not Resolved]

NARRATIVE: CASE EVENT DATE: 201512
